FAERS Safety Report 4320122-3 (Version None)
Quarter: 2004Q1

REPORT INFORMATION
  Report Type: 
  Country: None (occurrence: None)
  Receive Date: 20040317
  Receipt Date: 20040301
  Transmission Date: 20041129
  Serious: Yes (Life-Threatening)
  Sender: FDA-Public Use
  Company Number: 2004-SW-00065SF (0)

PATIENT
  Age: 76 Year
  Sex: Female

DRUGS (4)
  1. MOBIC [Suspect]
     Indication: ARTHRALGIA
     Dosage: 7.5 MG (7.5 MG, 1 IN 24 HR) PO
     Route: 048
     Dates: start: 20040129, end: 20040208
  2. NITROFUR C (NITROFUR-C) [Suspect]
     Indication: URINARY TRACT INFECTION
     Dosage: 75 MG (75 MG, 1 IN 24 HR)
     Dates: start: 20020930, end: 20040207
  3. CIPRAMIL (CITALOPRAM HYDROBROMIDE) [Concomitant]
  4. ACETYLSALICYLIC ACID SRT [Concomitant]

REACTIONS (6)
  - HEPATIC CONGESTION [None]
  - HEPATOCELLULAR DAMAGE [None]
  - HEPATOMEGALY [None]
  - LIVER DISORDER [None]
  - PULMONARY EMBOLISM [None]
  - STOMACH DISCOMFORT [None]
